FAERS Safety Report 8585012-9 (Version None)
Quarter: 2012Q3

REPORT INFORMATION
  Report Type: 
  Country: None (occurrence: None)
  Receive Date: 20120810
  Receipt Date: 20120504
  Transmission Date: 20120928
  Serious: Yes (Hospitalization)
  Sender: FDA-Public Use
  Company Number: US-ROXANE LABORATORIES, INC.-2012-EU-02516GD

PATIENT
  Age: 60 Year
  Sex: Female

DRUGS (1)
  1. PREDNISONE TAB [Suspect]
     Indication: CROHN'S DISEASE
     Dosage: 20 MG

REACTIONS (9)
  - CYTOMEGALOVIRUS COLITIS [None]
  - WHEEZING [None]
  - ABDOMINAL PAIN [None]
  - VOMITING [None]
  - ENTEROCOLITIS INFECTIOUS [None]
  - NAUSEA [None]
  - STRONGYLOIDIASIS [None]
  - ASCITES [None]
  - LYMPHADENOPATHY [None]
